FAERS Safety Report 24567588 (Version 1)
Quarter: 2024Q4

REPORT INFORMATION
  Report Type: Spontaneous
  Country: RO (occurrence: RO)
  Receive Date: 20241031
  Receipt Date: 20241031
  Transmission Date: 20250115
  Serious: Yes (Hospitalization, Other)
  Sender: MERCK
  Company Number: RO-009507513-2410ROU012245

PATIENT
  Age: 62 Year

DRUGS (26)
  1. PEMBROLIZUMAB [Suspect]
     Active Substance: PEMBROLIZUMAB
     Indication: Non-small cell lung cancer stage IV
     Dosage: UNK
     Dates: start: 202205, end: 202205
  2. PEMBROLIZUMAB [Suspect]
     Active Substance: PEMBROLIZUMAB
     Indication: Gastric cancer
     Dosage: UNK
     Dates: start: 202208, end: 202208
  3. PEMBROLIZUMAB [Suspect]
     Active Substance: PEMBROLIZUMAB
     Dosage: UNK
     Dates: start: 202209, end: 202209
  4. PEMBROLIZUMAB [Suspect]
     Active Substance: PEMBROLIZUMAB
     Dosage: 200 MILLIGRAM, Q3W
     Dates: start: 202307, end: 202307
  5. PEMBROLIZUMAB [Suspect]
     Active Substance: PEMBROLIZUMAB
     Dosage: 200 MILLIGRAM, Q3W
     Dates: start: 202308, end: 202308
  6. PEMBROLIZUMAB [Suspect]
     Active Substance: PEMBROLIZUMAB
     Dosage: 200 MILLIGRAM, Q3W
     Dates: start: 202309, end: 202309
  7. PEMBROLIZUMAB [Suspect]
     Active Substance: PEMBROLIZUMAB
     Dosage: 200 MILLIGRAM, Q3W
     Dates: start: 202309, end: 202309
  8. PEMBROLIZUMAB [Suspect]
     Active Substance: PEMBROLIZUMAB
     Dosage: 200 MILLIGRAM, Q3W
     Dates: start: 202310, end: 202310
  9. PEMBROLIZUMAB [Suspect]
     Active Substance: PEMBROLIZUMAB
     Dosage: 200 MILLIGRAM, Q3W
     Dates: start: 202311, end: 202311
  10. PEMBROLIZUMAB [Suspect]
     Active Substance: PEMBROLIZUMAB
     Dosage: 200 MILLIGRAM, Q3W
     Dates: start: 202311, end: 202311
  11. PEMBROLIZUMAB [Suspect]
     Active Substance: PEMBROLIZUMAB
     Dosage: 200 MILLIGRAM, Q3W
     Dates: start: 202312, end: 202312
  12. PEMBROLIZUMAB [Suspect]
     Active Substance: PEMBROLIZUMAB
     Dosage: 200 MILLIGRAM, Q3W
     Dates: start: 202401, end: 202401
  13. PEMBROLIZUMAB [Suspect]
     Active Substance: PEMBROLIZUMAB
     Dosage: 200 MILLIGRAM, Q3W
     Dates: start: 202402, end: 202402
  14. PEMBROLIZUMAB [Suspect]
     Active Substance: PEMBROLIZUMAB
     Dosage: 200 MILLIGRAM, Q3W
     Dates: start: 202402, end: 202402
  15. PEMBROLIZUMAB [Suspect]
     Active Substance: PEMBROLIZUMAB
     Dosage: 200 MILLIGRAM, Q3W
     Dates: start: 202405, end: 202405
  16. PEMETREXED [Suspect]
     Active Substance: PEMETREXED
     Indication: Non-small cell lung cancer stage IV
     Dosage: UNK
     Dates: start: 202205, end: 202205
  17. PEMETREXED [Suspect]
     Active Substance: PEMETREXED
     Indication: Gastric cancer
     Dosage: UNK
     Dates: start: 202208, end: 202208
  18. PEMETREXED [Suspect]
     Active Substance: PEMETREXED
     Dosage: UNK
     Dates: start: 202209, end: 202209
  19. PEMETREXED [Suspect]
     Active Substance: PEMETREXED
     Dosage: UNK
     Dates: start: 202307, end: 202307
  20. PEMETREXED [Suspect]
     Active Substance: PEMETREXED
     Dosage: UNK
     Dates: start: 202308, end: 202308
  21. PEMETREXED [Suspect]
     Active Substance: PEMETREXED
     Dosage: UNK
     Dates: start: 202309, end: 202309
  22. PEMETREXED [Suspect]
     Active Substance: PEMETREXED
     Dosage: UNK
     Dates: start: 202309, end: 202309
  23. PEMETREXED [Suspect]
     Active Substance: PEMETREXED
     Dosage: UNK
  24. CARBOPLATIN [Suspect]
     Active Substance: CARBOPLATIN
     Indication: Non-small cell lung cancer stage IV
     Dosage: UNK
     Dates: start: 202205, end: 202205
  25. CARBOPLATIN [Suspect]
     Active Substance: CARBOPLATIN
     Indication: Gastric cancer
     Dosage: UNK
     Dates: start: 202208, end: 202208
  26. CARBOPLATIN [Suspect]
     Active Substance: CARBOPLATIN
     Dosage: UNK
     Dates: start: 202209, end: 202209

REACTIONS (18)
  - Red blood cell transfusion [Unknown]
  - Abdominal pain [Unknown]
  - Malignant neoplasm progression [Unknown]
  - Atrial fibrillation [Unknown]
  - Coronary artery occlusion [Unknown]
  - COVID-19 [Unknown]
  - Gastrointestinal injury [Unknown]
  - Therapy partial responder [Unknown]
  - Appetite disorder [Unknown]
  - Asthenia [Unknown]
  - Stomatitis [Unknown]
  - Diarrhoea [Unknown]
  - Dyspnoea exertional [Unknown]
  - Fatigue [Unknown]
  - Palpitations [Unknown]
  - Eastern Cooperative Oncology Group performance status worsened [Unknown]
  - Left ventricular hypertrophy [Unknown]
  - Diastolic dysfunction [Unknown]

NARRATIVE: CASE EVENT DATE: 20220401
